FAERS Safety Report 24554830 (Version 2)
Quarter: 2024Q4

REPORT INFORMATION
  Report Type: Report from Study
  Country: US (occurrence: US)
  Receive Date: 20241028
  Receipt Date: 20241120
  Transmission Date: 20250115
  Serious: Yes (Hospitalization, Other)
  Sender: AMNEAL
  Company Number: US-AMNEAL PHARMACEUTICALS-2024-AMRX-03867

PATIENT
  Sex: Male
  Weight: 83.9 kg

DRUGS (1)
  1. CARBIDOPA\LEVODOPA [Suspect]
     Active Substance: CARBIDOPA\LEVODOPA
     Indication: Parkinson^s disease
     Dosage: (36.25-145 MG) 3 CAPSULES, 5 /DAY
     Route: 048

REACTIONS (2)
  - Parkinson^s disease [Unknown]
  - Illness [Unknown]
